FAERS Safety Report 7655518-5 (Version None)
Quarter: 2011Q3

REPORT INFORMATION
  Report Type: 
  Country: None (occurrence: None)
  Receive Date: 20110804
  Receipt Date: 20110726
  Transmission Date: 20111222
  Serious: Yes (Hospitalization)
  Sender: FDA-Public Use
  Company Number: JP-BAYER-2011-041626

PATIENT
  Age: 72 Year
  Sex: Male
  Weight: 46 kg

DRUGS (10)
  1. ALDACTONE [Concomitant]
     Indication: OEDEMA
     Dosage: 25 MG, TID
     Route: 048
  2. NEXAVAR [Suspect]
     Dosage: 200 MG, BID
     Route: 048
     Dates: start: 20110607, end: 20110701
  3. LIVACT [Concomitant]
     Indication: OEDEMA
     Dosage: 4.15 G, TID
     Route: 048
  4. LEVOTHYROXINE SODIUM [Concomitant]
     Indication: HYPOTHYROIDISM
     Dosage: 50 ?G, BID
     Route: 048
  5. URSO 250 [Concomitant]
     Indication: HEPATITIS
     Dosage: DAILY DOSE 600 MG
     Route: 048
  6. FAMOTIDINE [Concomitant]
     Indication: GASTRITIS
     Dosage: 20 MG, BID
     Route: 065
  7. NEXAVAR [Suspect]
     Indication: HEPATIC NEOPLASM MALIGNANT
     Dosage: 400 MG, BID
     Route: 048
     Dates: start: 20110421, end: 20110506
  8. WARFARIN SODIUM [Concomitant]
     Indication: THROMBOSIS PROPHYLAXIS
     Dosage: 1 MG, QD
     Route: 048
  9. VANCOMIN [Concomitant]
     Indication: NEURITIS
     Dosage: 500 ?G, TID
     Route: 065
  10. LASIX [Concomitant]
     Indication: OEDEMA
     Dosage: DAILY DOSE 20 MG
     Route: 065

REACTIONS (7)
  - DIARRHOEA [None]
  - BLOOD URIC ACID INCREASED [None]
  - RASH [None]
  - HAEMOGLOBIN INCREASED [None]
  - HEPATIC FUNCTION ABNORMAL [None]
  - MUSCLE SPASMS [None]
  - MALAISE [None]
